FAERS Safety Report 5624820-0 (Version None)
Quarter: 2008Q1

REPORT INFORMATION
  Report Type: 
  Country: None (occurrence: None)
  Receive Date: 20080208
  Receipt Date: 20080129
  Transmission Date: 20080703
  Serious: Yes (Hospitalization, Other)
  Sender: FDA-Public Use
  Company Number: 2008BI002567

PATIENT
  Age: 57 Year
  Sex: Male

DRUGS (1)
  1. AVONEX [Suspect]
     Indication: MULTIPLE SCLEROSIS
     Dosage: IM
     Route: 030
     Dates: start: 19980108

REACTIONS (8)
  - AMNESIA [None]
  - BLINDNESS UNILATERAL [None]
  - CONDITION AGGRAVATED [None]
  - CONFUSIONAL STATE [None]
  - DYSARTHRIA [None]
  - HIP ARTHROPLASTY [None]
  - MENINGIOMA [None]
  - MULTIPLE SCLEROSIS [None]
